FAERS Safety Report 4536494-0 (Version None)
Quarter: 2004Q4

REPORT INFORMATION
  Report Type: 
  Country: None (occurrence: None)
  Receive Date: 20041223
  Receipt Date: 20041214
  Transmission Date: 20050328
  Serious: Yes (Other)
  Sender: FDA-Public Use
  Company Number: US-JNJFOC-20041002799

PATIENT
  Sex: Female
  Weight: 74.84 kg

DRUGS (12)
  1. RISPERDAL [Suspect]
     Dosage: @HS
     Route: 049
  2. RISPERDAL [Suspect]
     Indication: AGITATION
     Dosage: IN AM AND @HS
     Route: 049
  3. METROPROLOL [Concomitant]
  4. LIPITOR [Concomitant]
  5. FERROUS SULFATE TAB [Concomitant]
  6. PREMARIN [Concomitant]
  7. PROVERA [Concomitant]
  8. CEROVITE [Concomitant]
  9. CEROVITE [Concomitant]
  10. CEROVITE [Concomitant]
  11. CEROVITE [Concomitant]
  12. CEROVITE [Concomitant]

REACTIONS (2)
  - HAEMATOCRIT DECREASED [None]
  - HAEMOGLOBIN DECREASED [None]
